FAERS Safety Report 11738094 (Version 1)
Quarter: 2015Q4

REPORT INFORMATION
  Report Type: Spontaneous
  Country: US (occurrence: US)
  Receive Date: 20151110
  Receipt Date: 20151110
  Transmission Date: 20160304
  Serious: No
  Sender: FDA-Public Use
  Company Number: US-ELI_LILLY_AND_COMPANY-US201207006759

PATIENT
  Age: 61 Year
  Sex: Female

DRUGS (2)
  1. FORTEO [Suspect]
     Active Substance: TERIPARATIDE
     Indication: OSTEOPOROSIS
     Dosage: UNK, QD
     Dates: start: 20120704
  2. VITAMIN D [Concomitant]
     Active Substance: CHOLECALCIFEROL
     Indication: VITAMIN D DECREASED
     Dosage: UNK, WEEKLY (1/W)
     Dates: start: 201206

REACTIONS (14)
  - Nerve injury [Unknown]
  - Calcinosis [Unknown]
  - Breast discomfort [Recovered/Resolved]
  - Osteoporosis [Unknown]
  - Musculoskeletal discomfort [Unknown]
  - Hypotension [Unknown]
  - Breast tenderness [Unknown]
  - Burning sensation [Unknown]
  - Heart rate increased [Unknown]
  - Pain in extremity [Unknown]
  - Nausea [Recovering/Resolving]
  - Hyperhidrosis [Recovering/Resolving]
  - Breast pain [Unknown]
  - Palpitations [Recovering/Resolving]

NARRATIVE: CASE EVENT DATE: 201207
